FAERS Safety Report 13343044 (Version 1)
Quarter: 2017Q1

REPORT INFORMATION
  Report Type: Report from Study
  Country: None (occurrence: DE)
  Receive Date: 20170316
  Receipt Date: 20170316
  Transmission Date: 20170428
  Serious: Yes (Other)
  Sender: FDA-Public Use
  Company Number: DE-ABBVIE-17K-062-1907497-00

PATIENT
  Age: 33 Year
  Sex: Female

DRUGS (2)
  1. HUMIRA [Suspect]
     Active Substance: ADALIMUMAB
     Indication: CROHN^S DISEASE
     Route: 058
     Dates: start: 20161121, end: 20170227
  2. AZATHIOPRIN [Concomitant]
     Active Substance: AZATHIOPRINE
     Indication: PRODUCT USED FOR UNKNOWN INDICATION
     Dosage: DOSE GRADUALLY REDUCED UNTIL COMPLETE WITHDRAWAL END OF JAN 2017
     Dates: end: 201701

REACTIONS (2)
  - Incisional hernia [Not Recovered/Not Resolved]
  - Enterocutaneous fistula [Not Recovered/Not Resolved]

NARRATIVE: CASE EVENT DATE: 20170207
